FAERS Safety Report 15877642 (Version 2)
Quarter: 2019Q1

REPORT INFORMATION
  Report Type: Spontaneous
  Country: CN (occurrence: CN)
  Receive Date: 20190128
  Receipt Date: 20190309
  Transmission Date: 20190417
  Serious: Yes (Death)
  Sender: FDA-Public Use
  Company Number: CN-ROCHE-2251725

PATIENT

DRUGS (4)
  1. GANCICLOVIR. [Concomitant]
     Active Substance: GANCICLOVIR
     Indication: INFECTION PROPHYLAXIS
     Dosage: PER DAY
     Route: 065
  2. CELLCEPT [Suspect]
     Active Substance: MYCOPHENOLATE MOFETIL\MYCOPHENOLATE MOFETIL HYDROCHLORIDE
     Indication: POSTOPERATIVE CARE
     Route: 065
  3. ANTI-THYMOCYTE GLOBULIN (EQUINE) [Concomitant]
     Active Substance: EQUINE THYMOCYTE IMMUNE GLOBULIN
  4. CSA [Concomitant]
     Active Substance: CYCLOSPORINE
     Indication: POSTOPERATIVE CARE

REACTIONS (4)
  - Acute respiratory failure [Fatal]
  - Pneumonia aspiration [Fatal]
  - Acute kidney injury [Fatal]
  - Bulbar palsy [Fatal]
